FAERS Safety Report 8605939-9 (Version None)
Quarter: 2012Q3

REPORT INFORMATION
  Report Type: 
  Country: None (occurrence: None)
  Receive Date: 20120820
  Receipt Date: 20120814
  Transmission Date: 20120928
  Serious: Yes (Death, Hospitalization)
  Sender: FDA-Public Use
  Company Number: US-ROCHE-1088082

PATIENT
  Age: 59 Year
  Sex: Male
  Weight: 92.08 kg

DRUGS (3)
  1. DOCETAXEL [Suspect]
     Indication: HEAD AND NECK CANCER
     Dosage: OVER 1 HOUR ON DAY 1, LAST DOSE PRIOR TO THE EVENT: 12/JUL/2012
     Route: 042
     Dates: start: 20120523
  2. CARBOPLATIN [Suspect]
     Indication: HEAD AND NECK CANCER
     Dosage: AUC 6 OVER 30 MINUTES ON DAY 1, LAST DOSE PRIOR TO THE EVENT: 12/JUL/2012
     Route: 042
     Dates: start: 20120523
  3. AVASTIN [Suspect]
     Indication: HEAD AND NECK CANCER
     Dosage: ON DAY 1 OVER 30-90 MINUTES, LAST DOSE PRIOR TO THE EVENT: 23/MAY/2012
     Route: 042
     Dates: start: 20120523

REACTIONS (2)
  - OESOPHAGEAL FISTULA [None]
  - POST PROCEDURAL HAEMORRHAGE [None]
